FAERS Safety Report 16567996 (Version 6)
Quarter: 2020Q2

REPORT INFORMATION
  Report Type: Report from Study
  Country: US (occurrence: US)
  Receive Date: 20190712
  Receipt Date: 20200415
  Transmission Date: 20200713
  Serious: Yes (Hospitalization)
  Sender: FDA-Public Use
  Company Number: US-ACTELION-A-NJ2018-181805

PATIENT
  Age: 78 Year
  Sex: Female
  Weight: 80.73 kg

DRUGS (13)
  1. UPTRAVI [Suspect]
     Active Substance: SELEXIPAG
     Dosage: 800 MCG, BID
     Route: 048
  2. REMODULIN [Suspect]
     Active Substance: TREPROSTINIL
     Indication: PRODUCT USED FOR UNKNOWN INDICATION
     Route: 065
  3. ADEMPAS [Concomitant]
     Active Substance: RIOCIGUAT
  4. UPTRAVI [Suspect]
     Active Substance: SELEXIPAG
     Dosage: 800 MCG IN PM
     Route: 048
  5. WARFARIN [Concomitant]
     Active Substance: WARFARIN
  6. OPSUMIT [Suspect]
     Active Substance: MACITENTAN
     Dosage: 10 UNK
     Route: 048
  7. UPTRAVI [Suspect]
     Active Substance: SELEXIPAG
     Dosage: 600 MCG IN AM
     Route: 048
  8. UPTRAVI [Suspect]
     Active Substance: SELEXIPAG
     Dosage: 600 MCG, BID
     Route: 048
  9. UPTRAVI [Suspect]
     Active Substance: SELEXIPAG
     Dosage: 1800 MCG, BID
     Route: 048
  10. ELIQUIS [Concomitant]
     Active Substance: APIXABAN
  11. OPSUMIT [Suspect]
     Active Substance: MACITENTAN
     Indication: PULMONARY ARTERIAL HYPERTENSION
     Dosage: 10 MG, QD
     Route: 048
  12. UPTRAVI [Suspect]
     Active Substance: SELEXIPAG
     Indication: PULMONARY ARTERIAL HYPERTENSION
     Dosage: 200 MCG, BID
     Route: 048
  13. AMLODIPINE [Concomitant]
     Active Substance: AMLODIPINE BESYLATE

REACTIONS (39)
  - Therapy change [Unknown]
  - Bronchitis chronic [Unknown]
  - Flatulence [Unknown]
  - Surgery [Recovering/Resolving]
  - Ear discomfort [Unknown]
  - Nausea [Unknown]
  - Pain [Unknown]
  - Asthenia [Unknown]
  - Arthralgia [Recovering/Resolving]
  - Ear pain [Unknown]
  - Bronchitis [Unknown]
  - Ischaemia [Unknown]
  - Gastrointestinal disorder [Recovering/Resolving]
  - Feeding disorder [Unknown]
  - Insomnia [Unknown]
  - Carpal tunnel syndrome [Recovering/Resolving]
  - Drug intolerance [Unknown]
  - Catheterisation cardiac [Unknown]
  - Weight decreased [Unknown]
  - Anal incontinence [Unknown]
  - Vomiting [Unknown]
  - Diarrhoea [Unknown]
  - Dyspnoea exertional [Unknown]
  - Irritability [Unknown]
  - Ill-defined disorder [Recovering/Resolving]
  - Proctalgia [Unknown]
  - Accidental overdose [Unknown]
  - Unevaluable event [Unknown]
  - Myalgia [Unknown]
  - Dyspepsia [Unknown]
  - Fatigue [Unknown]
  - Gait disturbance [Recovering/Resolving]
  - Dizziness [Unknown]
  - Dyspnoea [Recovering/Resolving]
  - Intracardiac pressure increased [Unknown]
  - Abdominal distension [Unknown]
  - Oxygen saturation decreased [Recovering/Resolving]
  - Abdominal pain upper [Unknown]
  - Feeling abnormal [Unknown]

NARRATIVE: CASE EVENT DATE: 20200404
